FAERS Safety Report 4951753-5 (Version None)
Quarter: 2006Q1

REPORT INFORMATION
  Report Type: 
  Country: None (occurrence: None)
  Receive Date: 20060323
  Receipt Date: 20060316
  Transmission Date: 20060701
  Serious: Yes (Other)
  Sender: FDA-Public Use
  Company Number: DE-GLAXOSMITHKLINE-B0416603A

PATIENT
  Sex: Female
  Weight: 81 kg

DRUGS (2)
  1. TOPOTECAN HYDROCHLORIDE [Suspect]
     Indication: OVARIAN CANCER
     Dosage: 7.76MG WEEKLY
     Route: 042
     Dates: start: 20050926
  2. FRAXIPARIN [Concomitant]
     Indication: THROMBOSIS
     Dosage: 1.2ML PER DAY
     Route: 058
     Dates: start: 20051015

REACTIONS (1)
  - THROMBOSIS [None]
